FAERS Safety Report 15471418 (Version 1)
Quarter: 2018Q4

REPORT INFORMATION
  Report Type: Report from Study
  Country: CL (occurrence: CL)
  Receive Date: 20181007
  Receipt Date: 20181007
  Transmission Date: 20190205
  Serious: Yes (Hospitalization, Other)
  Sender: FDA-Public Use
  Company Number: CL-TEVA-2018-CL-960559

PATIENT
  Sex: Female

DRUGS (2)
  1. CAPECITABINE. [Suspect]
     Active Substance: CAPECITABINE
     Indication: COLON CANCER
     Dosage: 1000 MILLIGRAM DAILY; FIRST CYCLE, 500MG TWICE DAILY.
     Route: 065
  2. CAPECITABINE. [Suspect]
     Active Substance: CAPECITABINE
     Dosage: 3500 MILLIGRAM DAILY; SECOND CYCLE, 4 TABS OF 500MG IN MORNING AND 3 TABS OF 500MG AT NIGHT.
     Route: 065

REACTIONS (3)
  - Clostridial infection [Unknown]
  - Pyrexia [Unknown]
  - Incorrect dose administered [Unknown]
